FAERS Safety Report 25540830 (Version 2)
Quarter: 2025Q3

REPORT INFORMATION
  Report Type: Spontaneous
  Country: EU (occurrence: EU)
  Receive Date: 20250710
  Receipt Date: 20250717
  Transmission Date: 20251020
  Serious: Yes (Life-Threatening, Other)
  Sender: BAUSCH AND LOMB
  Company Number: EU-BAUSCH-BH-2025-014324

PATIENT
  Sex: Male

DRUGS (12)
  1. DEXAMETHASONE [Suspect]
     Active Substance: DEXAMETHASONE
     Indication: Precursor T-lymphoblastic lymphoma/leukaemia recurrent
     Route: 065
  2. DEXAMETHASONE [Suspect]
     Active Substance: DEXAMETHASONE
     Indication: Precursor T-lymphoblastic lymphoma/leukaemia refractory
     Route: 042
     Dates: start: 202204
  3. DEXAMETHASONE [Suspect]
     Active Substance: DEXAMETHASONE
     Indication: Precursor T-lymphoblastic lymphoma/leukaemia
  4. CYCLOPHOSPHAMIDE [Suspect]
     Active Substance: CYCLOPHOSPHAMIDE
     Indication: Precursor T-lymphoblastic lymphoma/leukaemia
     Route: 065
  5. VINCRISTINE [Suspect]
     Active Substance: VINCRISTINE
     Indication: Precursor T-lymphoblastic lymphoma/leukaemia
     Route: 065
  6. DOXORUBICIN HYDROCHLORIDE [Suspect]
     Active Substance: DOXORUBICIN HYDROCHLORIDE
     Indication: Precursor T-lymphoblastic lymphoma/leukaemia
     Route: 065
  7. BORTEZOMIB [Suspect]
     Active Substance: BORTEZOMIB
     Indication: Precursor T-lymphoblastic lymphoma/leukaemia recurrent
     Route: 058
     Dates: start: 202204
  8. BORTEZOMIB [Suspect]
     Active Substance: BORTEZOMIB
     Indication: Precursor T-lymphoblastic lymphoma/leukaemia refractory
  9. TOLODODEKIN ALFA [Suspect]
     Active Substance: TOLODODEKIN ALFA
     Indication: Precursor T-lymphoblastic lymphoma/leukaemia recurrent
     Dosage: DAYS 1, 8, AND 15. THE PATIENT RECEIVED 3 CYCLES (21 DAYS PER?CYCLES)(DARATUMUMAB-BORTEZOMIB-DEXAMET
     Route: 042
     Dates: start: 202204
  10. TOLODODEKIN ALFA [Suspect]
     Active Substance: TOLODODEKIN ALFA
     Indication: Precursor T-lymphoblastic lymphoma/leukaemia refractory
  11. NELARABINE [Suspect]
     Active Substance: NELARABINE
     Indication: Precursor T-lymphoblastic lymphoma/leukaemia recurrent
     Dosage: MONOTHERAPY ADMINISTERED ON AN ALTERNATE-DAY SCHEDULE- ON DAYS 1, 3, AND 5
     Route: 065
  12. NELARABINE [Suspect]
     Active Substance: NELARABINE
     Indication: Precursor T-lymphoblastic lymphoma/leukaemia refractory

REACTIONS (6)
  - Thrombocytopenia [Unknown]
  - Febrile neutropenia [Unknown]
  - Bronchopulmonary aspergillosis [Unknown]
  - Therapy non-responder [Unknown]
  - Anaemia [Unknown]
  - Infusion related reaction [Unknown]
